FAERS Safety Report 13121171 (Version 1)
Quarter: 2017Q1

REPORT INFORMATION
  Report Type: Spontaneous
  Country: US (occurrence: US)
  Receive Date: 20170113
  Receipt Date: 20170113
  Transmission Date: 20170428
  Serious: Yes (Other)
  Sender: FDA-Public Use
  Company Number: None

PATIENT
  Age: 61 Year
  Sex: Male
  Weight: 78.75 kg

DRUGS (13)
  1. SIMVASTATIN. [Concomitant]
     Active Substance: SIMVASTATIN
  2. VITAMIN D [Concomitant]
     Active Substance: CHOLECALCIFEROL
  3. FISH OIL [Concomitant]
     Active Substance: FISH OIL
  4. OMEGA 3 [Concomitant]
     Active Substance: OMEGA-3 FATTY ACIDS
  5. BENADRYL [Concomitant]
     Active Substance: DIPHENHYDRAMINE HYDROCHLORIDE
  6. TUMS [Concomitant]
     Active Substance: CALCIUM CARBONATE
  7. FINASTERIDE. [Concomitant]
     Active Substance: FINASTERIDE
  8. ASPIRIN. [Concomitant]
     Active Substance: ASPIRIN
  9. MIRTAZAPINE. [Concomitant]
     Active Substance: MIRTAZAPINE
  10. CHLORTHALIDONE. [Concomitant]
     Active Substance: CHLORTHALIDONE
  11. VOLTAREN [Concomitant]
     Active Substance: DICLOFENAC SODIUM
  12. KINERET [Suspect]
     Active Substance: ANAKINRA
     Indication: POLYARTHRITIS
     Route: 058
     Dates: start: 20161115, end: 20161229
  13. TAMSULOSIN [Concomitant]
     Active Substance: TAMSULOSIN

REACTIONS (3)
  - Gynaecomastia [None]
  - Nipple pain [None]
  - Breast swelling [None]

NARRATIVE: CASE EVENT DATE: 20161130
